FAERS Safety Report 18966946 (Version 1)
Quarter: 2021Q1

REPORT INFORMATION
  Report Type: Report from Study
  Country: US (occurrence: US)
  Receive Date: 20210304
  Receipt Date: 20210304
  Transmission Date: 20210420
  Serious: Yes (Other)
  Sender: FDA-Public Use
  Company Number: US-BRISTOL-MYERS SQUIBB COMPANY-BMS-2021-003629

PATIENT
  Sex: Male

DRUGS (1)
  1. DASATINIB. [Suspect]
     Active Substance: DASATINIB
     Indication: PRODUCT USED FOR UNKNOWN INDICATION
     Dosage: 100 MILLIGRAM
     Route: 065
     Dates: end: 2019

REACTIONS (6)
  - Cerebrovascular accident [Unknown]
  - Fall [Unknown]
  - Pleural effusion [Unknown]
  - Sepsis [Unknown]
  - Leukaemia [Unknown]
  - Pulmonary oedema [Unknown]
